FAERS Safety Report 11584519 (Version 2)
Quarter: 2015Q4

REPORT INFORMATION
  Report Type: Spontaneous
  Country: US (occurrence: US)
  Receive Date: 20151001
  Receipt Date: 20151120
  Transmission Date: 20160304
  Serious: Yes (Hospitalization, Other)
  Sender: FDA-Public Use
  Company Number: US-APOTEX-2015AP012961

PATIENT
  Age: 72 Year
  Sex: Female
  Weight: 70 kg

DRUGS (11)
  1. MAGNESIUM OXIDE. [Suspect]
     Active Substance: MAGNESIUM OXIDE
     Indication: ATRIAL FIBRILLATION
     Dosage: 1/2 DAILY
     Route: 048
  2. ATIVAN [Suspect]
     Active Substance: LORAZEPAM
     Indication: ANXIETY
     Dosage: 1 MG, AS NEEDED, EVERY OTHER DAY
     Route: 048
     Dates: start: 20150713
  3. CYMBALTA [Suspect]
     Active Substance: DULOXETINE HYDROCHLORIDE
     Indication: PRODUCT USED FOR UNKNOWN INDICATION
     Dosage: 30 MG, UNK
     Route: 065
     Dates: start: 20150712
  4. CALTRATE WITH VITAMIN D [Suspect]
     Active Substance: CALCIUM CARBONATE\CHOLECALCIFEROL
     Indication: OSTEOPOROSIS
     Dosage: ONE TWICE A DAY
     Route: 065
     Dates: start: 20150728
  5. QUINAPRIL TABLETS USP [Suspect]
     Active Substance: QUINAPRIL\QUINAPRIL HYDROCHLORIDE
     Indication: BLOOD PRESSURE MEASUREMENT
     Dosage: 20 MG, Q.AM
     Route: 065
  6. VITAMINS WITH MINERALS [Suspect]
     Active Substance: MINERALS\VITAMINS
     Indication: VITAMIN SUPPLEMENTATION
     Dosage: 1 DF, DAILY WITH MEALS
     Route: 065
     Dates: start: 20150714
  7. PRILOSEC [Suspect]
     Active Substance: OMEPRAZOLE MAGNESIUM
     Indication: GASTROOESOPHAGEAL REFLUX DISEASE
     Dosage: 20 MG, Q.O.D.
     Route: 048
  8. ELIQUIS [Suspect]
     Active Substance: APIXABAN
     Indication: ATRIAL FIBRILLATION
     Dosage: 5 MG, BID
     Route: 048
  9. PROBIOTIC                          /06395501/ [Suspect]
     Active Substance: BIFIDOBACTERIUM ANIMALIS SUBSP. LACTIS
     Indication: PRODUCT USED FOR UNKNOWN INDICATION
     Dosage: 1 DF, DAILY
     Route: 048
  10. SOTALOL HYDROCHLORIDE. [Suspect]
     Active Substance: SOTALOL HYDROCHLORIDE
     Indication: ATRIAL FIBRILLATION
     Dosage: 80 MG, BID
     Route: 048
  11. ARIMIDEX [Suspect]
     Active Substance: ANASTROZOLE
     Indication: BREAST CANCER
     Dosage: 1 MG, UNK
     Route: 048
     Dates: start: 20120508

REACTIONS (10)
  - Nausea [Recovering/Resolving]
  - Haemorrhoids [Recovering/Resolving]
  - Diarrhoea [Recovering/Resolving]
  - Palpitations [Unknown]
  - Pain [Recovering/Resolving]
  - Dizziness [Unknown]
  - Dyspnoea [Unknown]
  - Suicidal ideation [Recovering/Resolving]
  - Fatigue [Unknown]
  - Constipation [Recovering/Resolving]

NARRATIVE: CASE EVENT DATE: 20150712
